FAERS Safety Report 7067973-2 (Version None)
Quarter: 2010Q4

REPORT INFORMATION
  Report Type: 
  Country: None (occurrence: None)
  Receive Date: 20101028
  Receipt Date: 20101015
  Transmission Date: 20110411
  Serious: Yes (Life-Threatening, Other)
  Sender: FDA-Public Use
  Company Number: US-ACTELION-A-NJ2010-40727

PATIENT
  Sex: Female
  Weight: 27.211 kg

DRUGS (3)
  1. BOSENTAN TABLET 62.5 MG US [Suspect]
     Indication: PULMONARY ARTERIAL HYPERTENSION
     Dosage: 62.5 MG, BID
     Route: 048
     Dates: start: 20100120, end: 20100101
  2. BOSENTAN TABLET 62.5 MG US [Suspect]
     Dosage: 62.5 MG, BID
     Route: 048
     Dates: start: 20090804, end: 20091029
  3. BOSENTAN TABLET 62.5 MG US [Suspect]
     Dosage: 125 MG, BID
     Route: 048
     Dates: start: 20091030, end: 20100119

REACTIONS (3)
  - ADRENAL NEOPLASM [None]
  - BLOOD ALKALINE PHOSPHATASE INCREASED [None]
  - HEPATIC CIRRHOSIS [None]
